FAERS Safety Report 5720811-X (Version None)
Quarter: 2008Q2

REPORT INFORMATION
  Report Type: 
  Country: None (occurrence: None)
  Receive Date: 20080429
  Receipt Date: 20080423
  Transmission Date: 20081010
  Serious: Yes (Other)
  Sender: FDA-Public Use
  Company Number: PHRM2008FR00928

PATIENT
  Age: 27 Year
  Sex: Female
  Weight: 107 kg

DRUGS (3)
  1. SYNTOCINON [Suspect]
     Indication: INDUCED LABOUR
     Dosage: 1 ELECTRIC SYRINGE PUMP INJECTION
     Route: 042
     Dates: start: 20080216, end: 20080217
  2. SYNTOCINON [Suspect]
     Dosage: 5 IU, 5 IU IM, THEN 5 IU DIRECT IV
     Dates: start: 20080217, end: 20080217
  3. PROSTAGLANDINS [Concomitant]

REACTIONS (3)
  - DRUG INEFFECTIVE [None]
  - POSTPARTUM HAEMORRHAGE [None]
  - UTERINE ATONY [None]
